FAERS Safety Report 22599721 (Version 1)
Quarter: 2023Q2

REPORT INFORMATION
  Report Type: Spontaneous
  Country: GB (occurrence: GB)
  Receive Date: 20230614
  Receipt Date: 20230614
  Transmission Date: 20230721
  Serious: Yes (Other)
  Sender: FDA-Public Use
  Company Number: None

PATIENT
  Sex: Female

DRUGS (7)
  1. ESOMEPRAZOLE [Interacting]
     Active Substance: ESOMEPRAZOLE
     Indication: Reflux gastritis
     Dosage: UNKNOWN
     Route: 065
  2. LOSARTAN [Interacting]
     Active Substance: LOSARTAN
     Indication: Hypertension
     Dosage: 75MGS; ;
     Route: 065
  3. PROPRANOLOL [Interacting]
     Active Substance: PROPRANOLOL HYDROCHLORIDE
     Indication: Migraine
     Dosage: UNKNOWN
     Route: 065
  4. AMITRIPTYLINE [Concomitant]
     Active Substance: AMITRIPTYLINE
     Indication: Pain
     Dosage: UNKNOWN
     Route: 065
  5. ESTRADIOL [Concomitant]
     Active Substance: ESTRADIOL
     Indication: Hormone replacement therapy
     Dosage: UNKNOWN
     Route: 065
  6. MEBEVERINE [Concomitant]
     Active Substance: MEBEVERINE
     Indication: Irritable bowel syndrome
     Dosage: UNKNOWN
     Route: 065
  7. MEDROXYPROGESTERONE [Concomitant]
     Active Substance: MEDROXYPROGESTERONE
     Indication: Hormone replacement therapy
     Dosage: UNKNOWN
     Route: 065

REACTIONS (2)
  - Weight increased [Not Recovered/Not Resolved]
  - Drug interaction [Unknown]
